FAERS Safety Report 8515912-7 (Version None)
Quarter: 2012Q3

REPORT INFORMATION
  Report Type: 
  Country: None (occurrence: None)
  Receive Date: 20120717
  Receipt Date: 20120705
  Transmission Date: 20120928
  Serious: No
  Sender: FDA-Public Use
  Company Number: US-009507513-1207USA001432

PATIENT

DRUGS (1)
  1. JANUVIA [Suspect]
     Dosage: UNK
     Dates: start: 20111201

REACTIONS (2)
  - CYST [None]
  - DIABETES MELLITUS INADEQUATE CONTROL [None]
